FAERS Safety Report 9547464 (Version 1)
Quarter: 2013Q3

REPORT INFORMATION
  Report Type: Spontaneous
  Country: US (occurrence: None)
  Receive Date: 20130705
  Receipt Date: 20130705
  Transmission Date: 20140515
  Serious: Yes (Death)
  Sender: FDA-Public Use
  Company Number: 2013020103

PATIENT
  Age: 54 Year
  Sex: Male

DRUGS (4)
  1. CARISOPRODOL(CARISOPRODOL) [Suspect]
  2. FENTANYL (FENTANYL) [Suspect]
  3. DIAZEPAM (DIAZEPAM) [Suspect]
  4. OXYCODONE(OXYCODONE) [Suspect]

REACTIONS (1)
  - Drug abuse [None]
